FAERS Safety Report 4437034-7 (Version None)
Quarter: 2004Q3

REPORT INFORMATION
  Report Type: 
  Country: None (occurrence: None)
  Receive Date: 20040830
  Receipt Date: 20031125
  Transmission Date: 20050211
  Serious: Yes (Death)
  Sender: FDA-Public Use
  Company Number: US-GLAXOSMITHKLINE-A0441699A

PATIENT
  Age: 61 Year
  Sex: Male
  Weight: 222.7 kg

DRUGS (17)
  1. AVANDIA [Suspect]
     Indication: DIABETES MELLITUS NON-INSULIN-DEPENDENT
     Dosage: 4MG PER DAY
     Route: 048
     Dates: start: 20000322, end: 20020113
  2. HUMULIN [Concomitant]
     Route: 058
     Dates: start: 19931001
  3. VANCENASE AQ [Concomitant]
  4. LASIX [Concomitant]
     Dosage: 40MG THREE TIMES PER DAY
     Route: 048
  5. NEURONTIN [Concomitant]
  6. KLONOPIN [Concomitant]
  7. ZAROXOLYN [Concomitant]
  8. PROCARDIA XL [Concomitant]
  9. PAXIL [Concomitant]
     Dosage: 40MG PER DAY
     Route: 048
  10. MAGNESIUM SULFATE [Concomitant]
  11. TENORMIN [Concomitant]
  12. DIABETA [Concomitant]
     Dosage: 7.5MG TWICE PER DAY
     Route: 048
  13. ASPIRIN [Concomitant]
  14. BUSPAR [Concomitant]
  15. AMBIEN [Concomitant]
  16. CPAP MACHINE [Concomitant]
  17. ALBUTEROL [Concomitant]

REACTIONS (15)
  - ADVERSE EVENT [None]
  - AGGRESSION [None]
  - AGITATION [None]
  - ARRHYTHMIA [None]
  - CORONARY ARTERY DISEASE [None]
  - DEATH [None]
  - DISORIENTATION [None]
  - FLUID OVERLOAD [None]
  - FLUID RETENTION [None]
  - HEART INJURY [None]
  - HEPATIC FAILURE [None]
  - HEPATOCELLULAR DAMAGE [None]
  - MAJOR DEPRESSION [None]
  - MENTAL STATUS CHANGES [None]
  - SLEEP APNOEA SYNDROME [None]
